FAERS Safety Report 5628978-9 (Version None)
Quarter: 2008Q1

REPORT INFORMATION
  Report Type: 
  Country: None (occurrence: None)
  Receive Date: 20080214
  Receipt Date: 20080207
  Transmission Date: 20080703
  Serious: Yes (Death, Other)
  Sender: FDA-Public Use
  Company Number: 163-21880-08020512

PATIENT
  Age: 80 Year
  Sex: Male

DRUGS (3)
  1. REVLIMID [Suspect]
     Indication: NON-HODGKIN'S LYMPHOMA
     Dosage: SEE IMAGE
     Route: 048
     Dates: start: 20070507, end: 20070701
  2. REVLIMID [Suspect]
     Indication: NON-HODGKIN'S LYMPHOMA
     Dosage: SEE IMAGE
     Route: 048
     Dates: start: 20070731, end: 20070801
  3. REVLIMID [Suspect]
     Indication: NON-HODGKIN'S LYMPHOMA
     Dosage: SEE IMAGE
     Route: 048
     Dates: start: 20070827, end: 20080101

REACTIONS (2)
  - LYMPHOMA [None]
  - MALIGNANT NEOPLASM PROGRESSION [None]
